FAERS Safety Report 6825886-2 (Version None)
Quarter: 2010Q3

REPORT INFORMATION
  Report Type: 
  Country: None (occurrence: None)
  Receive Date: 20100707
  Receipt Date: 20100707
  Transmission Date: 20110219
  Serious: Yes (Other)
  Sender: FDA-Public Use
  Company Number: None

PATIENT
  Sex: Female
  Weight: 54.4316 kg

DRUGS (1)
  1. LEVAQUIN [Suspect]
     Indication: URINARY TRACT INFECTION
     Dosage: 250MG DAILY PO
     Route: 048
     Dates: start: 20100423, end: 20100502

REACTIONS (3)
  - JOINT SPRAIN [None]
  - JOINT SWELLING [None]
  - TENDONITIS [None]
